FAERS Safety Report 4461703-6 (Version None)
Quarter: 2004Q3

REPORT INFORMATION
  Report Type: 
  Country: None (occurrence: None)
  Receive Date: 20040924
  Receipt Date: 20040924
  Transmission Date: 20050211
  Serious: Yes (Hospitalization)
  Sender: FDA-Public Use
  Company Number: None

PATIENT
  Age: 50 Year
  Sex: Female

DRUGS (1)
  1. FERRLECIT [Suspect]
     Indication: ANAEMIA
     Dosage: 250 MG ONCE IV
     Route: 042
     Dates: start: 20040921, end: 20040921

REACTIONS (3)
  - ABDOMINAL PAIN [None]
  - DIARRHOEA [None]
  - HYPOTENSION [None]
